FAERS Safety Report 9137976 (Version 1)
Quarter: 2013Q1

REPORT INFORMATION
  Report Type: Spontaneous
  Country: US (occurrence: US)
  Receive Date: 20130304
  Receipt Date: 20130304
  Transmission Date: 20140127
  Serious: No
  Sender: FDA-Public Use
  Company Number: US-ABBOTT-12P-163-0914606-00

PATIENT
  Sex: Male
  Weight: 102.15 kg

DRUGS (12)
  1. ANDROGEL 1% [Suspect]
     Indication: BLOOD TESTOSTERONE DECREASED
     Route: 061
  2. ANDROGEL 1% [Suspect]
     Dosage: DECREASED TO TAKING EVERY OTHER DAY, AND DECREASED AGAIN TO TAKING TWICE WEEKLY
     Route: 061
  3. ANDROGEL 1% [Suspect]
     Route: 061
     Dates: start: 2011
  4. ANDROGEL 1% [Suspect]
  5. ANDROGEL 1% PUMP [Concomitant]
     Indication: BLOOD TESTOSTERONE DECREASED
     Route: 061
  6. METHADONE [Concomitant]
     Indication: PAIN
     Route: 048
  7. BENAZEPRIL [Concomitant]
     Indication: HYPERTENSION
     Route: 048
  8. FUROSEMIDE [Concomitant]
     Indication: PRODUCT USED FOR UNKNOWN INDICATION
     Route: 048
  9. PRILOSEC [Concomitant]
     Indication: DYSPEPSIA
     Route: 048
  10. NIASPAN [Concomitant]
     Indication: PRODUCT USED FOR UNKNOWN INDICATION
  11. VENLAFAXINE [Concomitant]
     Indication: DEPRESSION
     Route: 048
  12. POTASSIUM [Concomitant]
     Indication: PRODUCT USED FOR UNKNOWN INDICATION
     Route: 048

REACTIONS (11)
  - Joint swelling [Not Recovered/Not Resolved]
  - Skin discolouration [Not Recovered/Not Resolved]
  - Abdominal distension [Not Recovered/Not Resolved]
  - Skin fissures [Not Recovered/Not Resolved]
  - Skin fissures [Not Recovered/Not Resolved]
  - Local swelling [Not Recovered/Not Resolved]
  - Weight increased [Not Recovered/Not Resolved]
  - Fluid retention [Not Recovered/Not Resolved]
  - Dyspnoea [Not Recovered/Not Resolved]
  - Application site pain [Not Recovered/Not Resolved]
  - Inappropriate schedule of drug administration [Not Recovered/Not Resolved]
